FAERS Safety Report 17527262 (Version 3)
Quarter: 2020Q1

REPORT INFORMATION
  Report Type: Spontaneous
  Country: US (occurrence: US)
  Receive Date: 20200311
  Receipt Date: 20200323
  Transmission Date: 20200409
  Serious: No
  Sender: FDA-Public Use
  Company Number: US-PFIZER INC-2020105275

PATIENT
  Age: 78 Year
  Sex: Male
  Weight: 124 kg

DRUGS (2)
  1. NORPACE CR [Suspect]
     Active Substance: DISOPYRAMIDE PHOSPHATE
     Indication: DYSPNOEA
     Dosage: 2 DF, 2X/DAY [TWO IN THE MORNING, AND TWO AT NIGHT]
     Dates: start: 202002, end: 202002
  2. NORPACE CR [Suspect]
     Active Substance: DISOPYRAMIDE PHOSPHATE
     Indication: CARDIAC DISORDER

REACTIONS (1)
  - Drug ineffective [Unknown]
